FAERS Safety Report 21745525 (Version 3)
Quarter: 2023Q2

REPORT INFORMATION
  Report Type: Report from Study
  Country: US (occurrence: US)
  Receive Date: 20221219
  Receipt Date: 20230424
  Transmission Date: 20230721
  Serious: No
  Sender: FDA-Public Use
  Company Number: US-ABBVIE-4239794

PATIENT
  Sex: Female

DRUGS (2)
  1. HUMIRA [Suspect]
     Active Substance: ADALIMUMAB
     Indication: Psoriasis
     Dosage: CITRATE FREE?FORM STRENGTH: 40MG
     Route: 058
     Dates: start: 20190601
  2. HUMIRA [Suspect]
     Active Substance: ADALIMUMAB
     Dosage: CITRATE FREE?FORM STRENGTH: 40MG
     Route: 058
     Dates: start: 2021

REACTIONS (2)
  - Psoriasis [Not Recovered/Not Resolved]
  - Hypertension [Unknown]
